FAERS Safety Report 8833895 (Version 1)
Quarter: 2012Q4

REPORT INFORMATION
  Report Type: 
  Country: US (occurrence: US)
  Receive Date: 20121010
  Receipt Date: 20121010
  Transmission Date: 20130627
  Serious: Yes (Life-Threatening, Hospitalization)
  Sender: FDA-Public Use
  Company Number: US-MYLANLABS-2012S1020449

PATIENT
  Age: 47 Year
  Sex: Male

DRUGS (1)
  1. TRAMADOL HYDROCHLORIDE TABLETS [Suspect]
     Indication: INTENTIONAL OVERDOSE
     Dosage: Admitted to ingesting all the tramadol tablets in a bottle previously containing 60 x 50mg tablets
     Route: 065

REACTIONS (5)
  - Intentional overdose [Recovered/Resolved]
  - Electrocardiogram abnormal [Recovered/Resolved]
  - Hypoventilation [Recovered/Resolved]
  - Unresponsive to stimuli [Recovered/Resolved]
  - Mental status changes [Recovered/Resolved]
